FAERS Safety Report 12308198 (Version 1)
Quarter: 2016Q2

REPORT INFORMATION
  Report Type: Spontaneous
  Country: US (occurrence: US)
  Receive Date: 20160426
  Receipt Date: 20160426
  Transmission Date: 20160815
  Serious: No
  Sender: FDA-Public Use
  Company Number: US-B.I. PHARMACEUTICALS,INC./RIDGEFIELD-2016-BI-23433BP

PATIENT
  Age: 72 Year
  Sex: Male

DRUGS (2)
  1. OFEV [Suspect]
     Active Substance: NINTEDANIB
     Indication: PRODUCT USED FOR UNKNOWN INDICATION
     Route: 048
     Dates: start: 2015, end: 201512
  2. CARBIDOPA- LEVODOPA [Concomitant]
     Indication: PARKINSON^S DISEASE
     Dosage: DOSE PER APPLICATION: 25-100MG
     Route: 048

REACTIONS (3)
  - Asthenia [Not Recovered/Not Resolved]
  - Secretion discharge [Not Recovered/Not Resolved]
  - Fatigue [Not Recovered/Not Resolved]

NARRATIVE: CASE EVENT DATE: 201601
